FAERS Safety Report 7012054-7 (Version None)
Quarter: 2010Q3

REPORT INFORMATION
  Report Type: 
  Country: None (occurrence: None)
  Receive Date: 20100924
  Receipt Date: 20100915
  Transmission Date: 20110219
  Serious: Yes (Hospitalization)
  Sender: FDA-Public Use
  Company Number: JP-ELI_LILLY_AND_COMPANY-JP200910003029

PATIENT
  Sex: Female
  Weight: 56.7 kg

DRUGS (22)
  1. GEMCITABINE HCL [Suspect]
     Indication: PANCREATIC CARCINOMA STAGE IV
     Dosage: 1600 MG, OTHER
     Route: 042
     Dates: start: 20090306, end: 20090708
  2. GEMCITABINE HCL [Suspect]
     Dosage: 1240 MG, OTHER
     Route: 042
     Dates: start: 20090722, end: 20090916
  3. KYTRIL /01178102/ [Concomitant]
     Indication: PROPHYLAXIS OF NAUSEA AND VOMITING
     Route: 042
  4. LOXONIN [Concomitant]
     Dosage: 60 MG, 3/D
     Route: 048
     Dates: start: 20090306
  5. SOSEGON /00052101/ [Concomitant]
     Dosage: 25 MG, 3/D
     Route: 048
     Dates: start: 20090306
  6. MUCOSTA [Concomitant]
     Dosage: 100 MG, 3/D
     Route: 048
     Dates: start: 20090306
  7. GASTER D [Concomitant]
     Dosage: 20 MG, 2/D
     Route: 048
     Dates: start: 20090306
  8. PURSENNID /00571901/ [Concomitant]
     Dosage: 24 MG, EACH EVENING
     Route: 048
     Dates: start: 20090306
  9. PANTETHINE [Concomitant]
     Dosage: 3 D/F, 3/D
     Route: 048
     Dates: start: 20090306
  10. MAGLAX [Concomitant]
     Dosage: 3 D/F, 3/D
     Route: 048
     Dates: start: 20090306
  11. ALLELOCK [Concomitant]
     Dosage: 5 MG, EACH EVENING
     Route: 048
     Dates: start: 20090306
  12. LENDORM [Concomitant]
     Dosage: 0.25 MG, EACH EVENING
     Route: 048
     Dates: start: 20090306
  13. ALLEGRA [Concomitant]
     Dosage: 2 D/F, 2/D
     Route: 048
     Dates: start: 20090306, end: 20090309
  14. EURODIN [Concomitant]
     Dosage: 1 MG, EACH EVENING
     Route: 048
     Dates: start: 20090515
  15. AMARYL [Concomitant]
     Dosage: 1 MG, EACH MORNING
     Route: 048
     Dates: start: 20090520, end: 20090609
  16. AMARYL [Concomitant]
     Dosage: 2 MG, EACH MORNING
     Route: 048
     Dates: start: 20090610
  17. DEXAMETHASONE [Concomitant]
     Dosage: 8 MG, UNKNOWN
     Route: 065
     Dates: start: 20090306, end: 20090507
  18. DEXAMETHASONE [Concomitant]
     Dosage: 4 MG, UNKNOWN
     Route: 065
     Dates: start: 20090520, end: 20090722
  19. LASIX [Concomitant]
     Indication: OEDEMA PERIPHERAL
  20. ALDACTONE [Concomitant]
     Indication: OEDEMA PERIPHERAL
     Dosage: 25 MG, EACH MORNING
     Route: 048
     Dates: start: 20090715
  21. CORTICOSTEROIDS [Concomitant]
     Indication: ECZEMA
     Route: 065
     Dates: start: 20090313
  22. ANTIALLERGIC AGENTS, EXCL CORTICOSTEROIDS [Concomitant]
     Indication: ECZEMA
     Dates: start: 20090313

REACTIONS (4)
  - CRYOGLOBULINAEMIA [None]
  - DIABETES MELLITUS [None]
  - NEPHRITIS AUTOIMMUNE [None]
  - THROMBOTIC MICROANGIOPATHY [None]
